FAERS Safety Report 18196167 (Version 1)
Quarter: 2020Q3

REPORT INFORMATION
  Report Type: Report from Study
  Country: US (occurrence: US)
  Receive Date: 20200826
  Receipt Date: 20200826
  Transmission Date: 20201103
  Serious: Yes (Other)
  Sender: FDA-Public Use
  Company Number: US-AUROBINDO-AUR-APL-2020-044579

PATIENT

DRUGS (1)
  1. EVOMELA [Suspect]
     Active Substance: MELPHALAN HYDROCHLORIDE
     Indication: BONE MARROW CONDITIONING REGIMEN
     Dosage: UNK
     Route: 065

REACTIONS (91)
  - Cytokine release syndrome [Recovered/Resolved]
  - Urinary retention [Recovered/Resolved]
  - Seizure [Recovered/Resolved]
  - Bladder spasm [Recovered/Resolved]
  - Dysarthria [Recovered/Resolved]
  - Diarrhoea [Recovered/Resolved]
  - Hypomagnesaemia [Recovered/Resolved]
  - Dizziness [Recovered/Resolved]
  - Atelectasis [Recovered/Resolved]
  - Electrocardiogram QT prolonged [Recovered/Resolved]
  - Immune system disorder [Recovered/Resolved]
  - Encephalitis [Recovered/Resolved]
  - Pollakiuria [Recovered/Resolved]
  - Colitis [Recovered/Resolved]
  - Hypocalcaemia [Recovered/Resolved]
  - Hypernatraemia [Recovered/Resolved]
  - Presyncope [Recovered/Resolved]
  - Atrial fibrillation [Recovered/Resolved]
  - Gastrointestinal disorder [Recovered/Resolved]
  - Sinus tachycardia [Recovered/Resolved]
  - Fatigue [Recovered/Resolved]
  - Hyperkalaemia [Recovered/Resolved]
  - Pleural effusion [Recovered/Resolved]
  - Myocardial infarction [Recovered/Resolved]
  - Delirium [Recovered/Resolved]
  - Hypoalbuminaemia [Recovered/Resolved]
  - Hypophosphataemia [Recovered/Resolved]
  - Upper gastrointestinal haemorrhage [Recovered/Resolved]
  - Hypoglycaemia [Recovered/Resolved]
  - Infection [Recovered/Resolved]
  - Hypotension [Recovered/Resolved]
  - Troponin T increased [Recovered/Resolved]
  - Blood alkaline phosphatase increased [Recovered/Resolved]
  - Flushing [Recovered/Resolved]
  - Lethargy [Recovered/Resolved]
  - Hepatic failure [Recovered/Resolved]
  - Hypokalaemia [Recovered/Resolved]
  - Haematuria [Recovered/Resolved]
  - Flatulence [Recovered/Resolved]
  - Mucosal inflammation [Recovered/Resolved]
  - Dyspnoea [Recovered/Resolved]
  - Human herpesvirus 6 infection [Recovered/Resolved]
  - Dysphagia [Recovered/Resolved]
  - Lymphocyte count decreased [Recovered/Resolved]
  - White blood cell count decreased [Recovered/Resolved]
  - Proctalgia [Recovered/Resolved]
  - Proteinuria [Recovered/Resolved]
  - Epistaxis [Recovered/Resolved]
  - Skin ulcer [Recovered/Resolved]
  - Sepsis [Recovered/Resolved]
  - Respiratory failure [Recovered/Resolved]
  - Hypermagnesaemia [Recovered/Resolved]
  - Nausea [Recovered/Resolved]
  - Oropharyngeal pain [Recovered/Resolved]
  - Haemorrhoids [Recovered/Resolved]
  - Back pain [Recovered/Resolved]
  - Hypoacusis [Recovered/Resolved]
  - Hyponatraemia [Recovered/Resolved]
  - Hyperuricaemia [Recovered/Resolved]
  - Chills [Recovered/Resolved]
  - Febrile neutropenia [Recovered/Resolved]
  - Neutrophil count decreased [Recovered/Resolved]
  - Agitation [Recovered/Resolved]
  - Sinus bradycardia [Recovered/Resolved]
  - Productive cough [Recovered/Resolved]
  - BK virus infection [Recovered/Resolved]
  - Urinary incontinence [Recovered/Resolved]
  - Aspiration [Recovered/Resolved]
  - Pulmonary hypertension [Recovered/Resolved]
  - Pain in extremity [Recovered/Resolved]
  - Large intestinal ulcer [Recovered/Resolved]
  - Dyspepsia [Recovered/Resolved]
  - Hypertriglyceridaemia [Recovered/Resolved]
  - Anal incontinence [Recovered/Resolved]
  - Anaemia [Recovered/Resolved]
  - Somnolence [Recovered/Resolved]
  - Tremor [Recovered/Resolved]
  - Graft versus host disease [Recovered/Resolved]
  - Nervous system disorder [Recovered/Resolved]
  - Acute kidney injury [Recovered/Resolved]
  - Hypertension [Recovered/Resolved]
  - Blood bilirubin increased [Recovered/Resolved]
  - Platelet count decreased [Recovered/Resolved]
  - Respiratory disorder [Recovered/Resolved]
  - Abdominal distension [Recovered/Resolved]
  - Blood creatinine increased [Recovered/Resolved]
  - Oedema peripheral [Recovered/Resolved]
  - Abdominal pain [Recovered/Resolved]
  - Headache [Recovered/Resolved]
  - Pyrexia [Recovered/Resolved]
  - Metabolic acidosis [Recovered/Resolved]

NARRATIVE: CASE EVENT DATE: 20180419
